FAERS Safety Report 5939768-1 (Version None)
Quarter: 2008Q4

REPORT INFORMATION
  Report Type: 
  Country: None (occurrence: None)
  Receive Date: 20081031
  Receipt Date: 20081031
  Transmission Date: 20090506
  Serious: Yes (Life-Threatening, Hospitalization)
  Sender: FDA-Public Use
  Company Number: None

PATIENT
  Age: 57 Year
  Sex: Female
  Weight: 54.4316 kg

DRUGS (5)
  1. AVELOX [Suspect]
     Indication: BRONCHITIS
     Dosage: 1 DAILY
     Dates: start: 20081005, end: 20081008
  2. AVELOX [Suspect]
     Indication: PNEUMONIA
     Dosage: 1 DAILY
     Dates: start: 20081005, end: 20081008
  3. AVELOX [Suspect]
     Indication: SINUSITIS
     Dosage: 1 DAILY
     Dates: start: 20081005, end: 20081008
  4. LEVAQUIN [Concomitant]
  5. BIOXIN [Concomitant]

REACTIONS (3)
  - CHEST DISCOMFORT [None]
  - DYSPNOEA [None]
  - INSOMNIA [None]
